FAERS Safety Report 8623166 (Version 4)
Quarter: 2014Q3

REPORT INFORMATION
  Report Type: Spontaneous
  Country: US (occurrence: US)
  Receive Date: 20120620
  Receipt Date: 20140818
  Transmission Date: 20150326
  Serious: Yes (Hospitalization)
  Sender: FDA-Public Use
  Company Number: US-BAYER-2012-059389

PATIENT
  Age: 21 Year
  Sex: Female
  Weight: 81.18 kg

DRUGS (2)
  1. MIRENA [Suspect]
     Active Substance: LEVONORGESTREL
     Indication: CONTRACEPTION
     Dosage: 20 MCG/24HR, CONT
     Route: 015
     Dates: start: 20110901, end: 20120620
  2. ZOLOFT [Concomitant]
     Active Substance: SERTRALINE HYDROCHLORIDE
     Dosage: UNK
     Dates: start: 2011

REACTIONS (6)
  - Injury [None]
  - Uterine perforation [Recovered/Resolved]
  - Pain [None]
  - Abdominal pain [Recovered/Resolved]
  - Emotional distress [None]
  - Off label use [None]

NARRATIVE: CASE EVENT DATE: 201206
